FAERS Safety Report 5516583-4 (Version None)
Quarter: 2007Q4

REPORT INFORMATION
  Report Type: 
  Country: None (occurrence: None)
  Receive Date: 20071109
  Receipt Date: 20070926
  Transmission Date: 20080405
  Serious: Yes (Other)
  Sender: FDA-Public Use
  Company Number: 2007S1009528

PATIENT
  Age: 83 Year
  Sex: Male

DRUGS (17)
  1. AZATHIOPRINE [Suspect]
     Indication: COLITIS ULCERATIVE
     Dosage: 50 MG; ORAL
     Route: 048
     Dates: start: 20070301, end: 20070624
  2. AZATHIOPRINE [Suspect]
     Indication: COLITIS ULCERATIVE
     Dosage: 50 MG; ORAL
     Route: 048
     Dates: start: 20070629, end: 20070724
  3. BECLOMETHASONE DIPROPIONATE [Concomitant]
  4. BENDROFLUAZIDE (BENDROFLUAZIDE) [Concomitant]
  5. CALCIUM CARBONATE (CALCIUM CARBONATE) [Concomitant]
  6. CETIRIZINE HCL [Concomitant]
  7. CITALOPRAM HYDROBROMIDE [Concomitant]
  8. DOXAZOSIN MESYLATE [Concomitant]
  9. LANSOPRAZOLE [Concomitant]
  10. MESALAMINE [Concomitant]
  11. PERINDOPRIL ERBUMINE [Concomitant]
  12. RISEDRONATE SODIUM [Concomitant]
  13. SALBUTAMOL (SALBUTAMOL) [Concomitant]
  14. SERETIDE (FLUTICASONE PROPIONATE W/SALMETEROL) [Concomitant]
  15. SIMVASTATIN [Concomitant]
  16. DOCUSATE SODIUM (DOCUSATE SODIUM) [Concomitant]
  17. TIOTROPIUM BROMIDE (TIOTROPIUM BROMIDE) [Concomitant]

REACTIONS (4)
  - ASTHENIA [None]
  - DECREASED APPETITE [None]
  - HEPATIC FUNCTION ABNORMAL [None]
  - LIVER FUNCTION TEST ABNORMAL [None]
